FAERS Safety Report 9377513 (Version 1)
Quarter: 2013Q3

REPORT INFORMATION
  Report Type: Spontaneous
  Country: JP (occurrence: JP)
  Receive Date: 20130701
  Receipt Date: 20130701
  Transmission Date: 20140515
  Serious: Yes (Hospitalization, Other)
  Sender: FDA-Public Use
  Company Number: PHHY2013JP067309

PATIENT
  Sex: 0

DRUGS (1)
  1. ZOLEDRONIC ACID [Suspect]
     Indication: METASTASES TO BONE
     Dosage: UNK
     Route: 041
     Dates: start: 2006

REACTIONS (9)
  - Tooth abscess [Unknown]
  - Osteonecrosis of jaw [Unknown]
  - Tooth fracture [Unknown]
  - Toothache [Unknown]
  - Swelling [Unknown]
  - Bone atrophy [Unknown]
  - Exposed bone in jaw [Unknown]
  - Osteogenesis imperfecta [Unknown]
  - Bone loss [Unknown]
